FAERS Safety Report 8409104 (Version 3)
Quarter: 2017Q4

REPORT INFORMATION
  Report Type: Report from Study
  Country: KR (occurrence: KR)
  Receive Date: 20120216
  Receipt Date: 20171113
  Transmission Date: 20180321
  Serious: Yes (Death, Other)
  Sender: FDA-Public Use
  Company Number: KR-ROCHE-1038068

PATIENT

DRUGS (3)
  1. PEGINTERFERON ALFA-2B [Suspect]
     Active Substance: PEGINTERFERON ALFA-2B
     Indication: CHRONIC HEPATITIS C
     Dosage: 1.0 TO 1.5 MICROG
     Route: 065
  2. PEG-INTERFERON ALFA 2A [Suspect]
     Active Substance: PEGINTERFERON ALFA-2A
     Indication: CHRONIC HEPATITIS C
     Route: 065
  3. RIBAVIRIN. [Suspect]
     Active Substance: RIBAVIRIN
     Indication: CHRONIC HEPATITIS C
     Dosage: 800 TO 1,200 MG
     Route: 065

REACTIONS (15)
  - Cytopenia [Unknown]
  - Neutrophil count decreased [Unknown]
  - Neutropenia [Fatal]
  - Urinary tract infection [Unknown]
  - Influenza like illness [Unknown]
  - Alopecia [Unknown]
  - Haemoglobin decreased [Unknown]
  - Dermatitis [Unknown]
  - Gastroenteritis [Unknown]
  - Sepsis [Fatal]
  - Platelet count decreased [Unknown]
  - Drug intolerance [Unknown]
  - Peritonitis [Unknown]
  - Affect lability [Unknown]
  - Tuberculosis [Unknown]
